FAERS Safety Report 7017622-4 (Version None)
Quarter: 2010Q3

REPORT INFORMATION
  Report Type: 
  Country: None (occurrence: None)
  Receive Date: 20100928
  Receipt Date: 20100511
  Transmission Date: 20110219
  Serious: Yes (Hospitalization, Other)
  Sender: FDA-Public Use
  Company Number: US-RANBAXY-2010RR-32629

PATIENT
  Age: 14 Year
  Sex: Female

DRUGS (5)
  1. VALPROIC ACID [Suspect]
     Indication: EPILEPSY
     Dosage: UNK
  2. PHENOBARBITAL [Suspect]
     Indication: EPILEPSY
     Dosage: UNK
  3. RANCEPINE [Suspect]
     Indication: EPILEPSY
  4. ZONISAMIDE [Suspect]
     Indication: EPILEPSY
  5. CARBAMAZEPINE [Suspect]
     Indication: EPILEPSY
     Dosage: UNK
     Route: 065

REACTIONS (2)
  - OVARIAN GRANULOSA-THECA CELL TUMOUR [None]
  - PERITONITIS SCLEROSING [None]
